FAERS Safety Report 14443994 (Version 1)
Quarter: 2018Q1

REPORT INFORMATION
  Report Type: Spontaneous
  Country: US (occurrence: US)
  Receive Date: 20180125
  Receipt Date: 20180125
  Transmission Date: 20180509
  Serious: Yes (Other)
  Sender: FDA-Public Use
  Company Number: US-TEIKOKU PHARMA USA-TPU2018-00039

PATIENT
  Age: 56 Year
  Sex: Male
  Weight: 108.96 kg

DRUGS (2)
  1. XARELTO [Concomitant]
     Active Substance: RIVAROXABAN
     Indication: THROMBOSIS
     Dates: start: 201408
  2. LIDODERM [Suspect]
     Active Substance: LIDOCAINE
     Indication: BACK PAIN
     Dates: start: 20020929

REACTIONS (1)
  - Malignant melanoma [Unknown]

NARRATIVE: CASE EVENT DATE: 201408
